FAERS Safety Report 4805784-6 (Version None)
Quarter: 2005Q4

REPORT INFORMATION
  Report Type: 
  Country: None (occurrence: None)
  Receive Date: 20051021
  Receipt Date: 20051004
  Transmission Date: 20060501
  Serious: Yes (Life-Threatening)
  Sender: FDA-Public Use
  Company Number: JP-ROCHE-420062

PATIENT
  Age: 56 Year
  Sex: Female

DRUGS (13)
  1. XELODA [Suspect]
     Indication: BREAST CANCER METASTATIC
     Route: 048
     Dates: start: 20050608, end: 20050727
  2. WARFARIN POTASSIUM [Suspect]
     Indication: ANTICOAGULANT THERAPY
     Route: 048
     Dates: start: 19800615, end: 20050725
  3. HYSRON-H [Concomitant]
     Route: 048
  4. FAMOTIDINE [Concomitant]
     Route: 048
  5. ACTONEL [Concomitant]
     Route: 048
  6. BIOFERMIN R [Concomitant]
     Dosage: FORMULATION REPORTED AS ORAL FORMULATION (NOT OTHERWISE SPECIFIED)
     Route: 048
  7. VOLTAREN [Concomitant]
     Dosage: FORMULATION REPORTED AS ORAL FORMULATION (NOT OTHERWISE SPECIFIED)
     Route: 048
  8. ARTIST [Concomitant]
     Route: 048
  9. VERAPAMIL [Concomitant]
     Route: 048
  10. HALFDIGOXIN KY [Concomitant]
     Route: 048
  11. AMARYL [Concomitant]
     Route: 048
  12. INNOLET 30R [Concomitant]
     Dosage: DRUG REPORTED AS INNOLET R ROUTE REPORTED AS INJECTABLE (NOT OTHERWISE SPECIFIED)
  13. MERISLON [Concomitant]
     Route: 048

REACTIONS (4)
  - DRUG INTERACTION [None]
  - HAEMORRHAGE INTRACRANIAL [None]
  - PROTHROMBIN TIME PROLONGED [None]
  - SUBDURAL HAEMATOMA [None]
